FAERS Safety Report 6227337-8 (Version None)
Quarter: 2009Q2

REPORT INFORMATION
  Report Type: 
  Country: None (occurrence: None)
  Receive Date: 20090612
  Receipt Date: 20090603
  Transmission Date: 20091009
  Serious: Yes (Hospitalization)
  Sender: FDA-Public Use
  Company Number: BE-JNJFOC-20090504111

PATIENT
  Sex: Female
  Weight: 86 kg

DRUGS (8)
  1. INVEGA [Suspect]
     Indication: DRUG USE FOR UNKNOWN INDICATION
     Route: 048
  2. CYANOCOBALAMIN [Concomitant]
     Indication: DRUG USE FOR UNKNOWN INDICATION
     Route: 048
  3. DEPAKENE [Concomitant]
     Indication: THYMUS DISORDER
     Route: 048
  4. DOMINAL [Concomitant]
     Indication: INSOMNIA
     Route: 048
  5. CLOTIAPINE [Concomitant]
     Indication: DRUG USE FOR UNKNOWN INDICATION
     Route: 048
  6. SEROQUEL [Concomitant]
     Indication: PSYCHOTIC DISORDER
     Route: 048
  7. EFFEXOR [Concomitant]
     Indication: DEPRESSION
     Route: 048
  8. RIVOTRIL [Concomitant]
     Indication: SEDATION
     Route: 048

REACTIONS (1)
  - HYPONATRAEMIA [None]
